FAERS Safety Report 11652953 (Version 4)
Quarter: 2015Q4

REPORT INFORMATION
  Report Type: Spontaneous
  Country: US (occurrence: US)
  Receive Date: 20151022
  Receipt Date: 20151027
  Transmission Date: 20160304
  Serious: No
  Sender: FDA-Public Use
  Company Number: GXBR2015US001965

PATIENT
  Sex: Male

DRUGS (1)
  1. OXISTAT [Suspect]
     Active Substance: OXICONAZOLE NITRATE
     Indication: FUNGAL INFECTION
     Dosage: UNK DF, QD
     Route: 061

REACTIONS (3)
  - Drug administration error [Unknown]
  - Off label use [Not Recovered/Not Resolved]
  - Onychomadesis [Not Recovered/Not Resolved]
